FAERS Safety Report 10165966 (Version 1)
Quarter: 2014Q2

REPORT INFORMATION
  Report Type: Spontaneous
  Country: US (occurrence: US)
  Receive Date: 20140511
  Receipt Date: 20140511
  Transmission Date: 20141212
  Serious: Yes (Hospitalization)
  Sender: FDA-Public Use
  Company Number: US-HORIZON-DUE-0018-2014

PATIENT
  Age: 53 Year
  Sex: Male

DRUGS (3)
  1. DUEXIS [Suspect]
     Indication: BACK PAIN
     Route: 048
     Dates: start: 20140220
  2. BUPROPION HC-SR [Concomitant]
  3. CITALOPRAM [Interacting]

REACTIONS (2)
  - Gastrointestinal haemorrhage [Not Recovered/Not Resolved]
  - Drug dose omission [Unknown]
